FAERS Safety Report 16037119 (Version 1)
Quarter: 2019Q1

REPORT INFORMATION
  Report Type: Spontaneous
  Country: US (occurrence: US)
  Receive Date: 20190305
  Receipt Date: 20190305
  Transmission Date: 20190418
  Serious: No
  Sender: FDA-Public Use
  Company Number: US-IMPAX LABORATORIES, LLC-2018-IPXL-03299

PATIENT
  Age: 86 Year
  Sex: Female

DRUGS (2)
  1. RYTARY [Suspect]
     Active Substance: CARBIDOPA\LEVODOPA
     Indication: PRODUCT USED FOR UNKNOWN INDICATION
     Dosage: 48.75/195MG, 1 CAPSULE 4 FOUR TIMES DAILY
     Route: 065
  2. RYTARY [Suspect]
     Active Substance: CARBIDOPA\LEVODOPA
     Dosage: 23.75/95MG, 1 CAPSULE 4 FOUR TIMES DAILY
     Route: 065

REACTIONS (4)
  - Faeces discoloured [Unknown]
  - Abdominal pain [Unknown]
  - Aggression [Unknown]
  - Diarrhoea [Unknown]
